FAERS Safety Report 6389873-3 (Version None)
Quarter: 2009Q4

REPORT INFORMATION
  Report Type: 
  Country: None (occurrence: None)
  Receive Date: 20091006
  Receipt Date: 20090217
  Transmission Date: 20100525
  Serious: No
  Sender: FDA-Public Use
  Company Number: US-BRISTOL-MYERS SQUIBB COMPANY-14456719

PATIENT
  Age: 46 Year
  Sex: Male
  Weight: 125 kg

DRUGS (11)
  1. AVAPRO [Suspect]
     Indication: HYPERTENSION
     Route: 048
     Dates: start: 20070907
  2. AVAPRO [Suspect]
     Indication: DIZZINESS
     Route: 048
     Dates: start: 20070907
  3. PRAVACHOL [Suspect]
     Indication: BLOOD CHOLESTEROL
     Route: 048
     Dates: start: 20080601
  4. PRAVASTATIN SODIUM [Concomitant]
     Dates: start: 20081225
  5. LOVAZA [Concomitant]
  6. METFORMIN HCL [Concomitant]
  7. ALLOPURINOL [Concomitant]
  8. LOPRESSOR [Concomitant]
  9. CENTRUM [Concomitant]
  10. ASCORBIC ACID [Concomitant]
  11. ALEVE [Concomitant]

REACTIONS (3)
  - DIZZINESS [None]
  - MUSCLE SPASMS [None]
  - ORTHOSTATIC HYPOTENSION [None]
